FAERS Safety Report 9827130 (Version 1)
Quarter: 2014Q1

REPORT INFORMATION
  Report Type: Spontaneous
  Country: US (occurrence: US)
  Receive Date: 20140117
  Receipt Date: 20140117
  Transmission Date: 20141002
  Serious: No
  Sender: FDA-Public Use
  Company Number: US-GLAXOSMITHKLINE-A1038958A

PATIENT
  Age: 48 Year
  Sex: Male

DRUGS (3)
  1. PROMACTA [Suspect]
     Indication: IMMUNE THROMBOCYTOPENIC PURPURA
     Dosage: 50MG PER DAY
     Route: 048
     Dates: start: 20130502, end: 20130724
  2. LISINOPRIL [Concomitant]
  3. PREDNISONE [Concomitant]

REACTIONS (1)
  - Drug ineffective [Unknown]
